FAERS Safety Report 7642881-4 (Version None)
Quarter: 2011Q3

REPORT INFORMATION
  Report Type: 
  Country: None (occurrence: None)
  Receive Date: 20110728
  Receipt Date: 20110719
  Transmission Date: 20111222
  Serious: Yes (Life-Threatening, Hospitalization, Other)
  Sender: FDA-Public Use
  Company Number: GB-PFIZER INC-2011061142

PATIENT
  Age: 71 Year
  Sex: Female

DRUGS (5)
  1. CO-PHENOTROPE [Concomitant]
     Dosage: 5.00 MG, 4X/DAY
     Dates: start: 20101224
  2. CELECOXIB [Suspect]
     Indication: OSTEOARTHRITIS
     Dosage: 100 MG, 2X/DAY
     Route: 048
     Dates: start: 20091105, end: 20110129
  3. CALCEOS [Concomitant]
     Dosage: 500 MG, 2X/DAY
     Dates: start: 20101230
  4. DULOXETINE [Concomitant]
     Dosage: 20 MG, 2X/DAY
     Dates: start: 20101103
  5. CODEINE PHOSPHATE [Concomitant]
     Dosage: 30 MG, 4X/DAY
     Dates: start: 20101230

REACTIONS (1)
  - SUBARACHNOID HAEMORRHAGE [None]
